FAERS Safety Report 10280907 (Version 3)
Quarter: 2014Q3

REPORT INFORMATION
  Report Type: Spontaneous
  Country: IT (occurrence: IT)
  Receive Date: 20140707
  Receipt Date: 20140918
  Transmission Date: 20150326
  Serious: Yes (Hospitalization)
  Sender: FDA-Public Use
  Company Number: IT-BRISTOL-MYERS SQUIBB COMPANY-21126925

PATIENT
  Age: 84 Year
  Sex: Female

DRUGS (9)
  1. TRIATEC [Concomitant]
     Active Substance: RAMIPRIL
     Dosage: TABS
  2. ALLOPURINOL. [Interacting]
     Active Substance: ALLOPURINOL
     Route: 048
     Dates: start: 20130517, end: 20140517
  3. PANTOPRAZOLE SODIUM [Interacting]
     Active Substance: PANTOPRAZOLE SODIUM
     Route: 048
     Dates: start: 20130517, end: 20140517
  4. CARDIOASPIRIN [Interacting]
     Active Substance: ASPIRIN
     Dosage: TABS
     Route: 048
     Dates: start: 20130517, end: 20140517
  5. CARVASIN [Concomitant]
     Active Substance: ISOSORBIDE DINITRATE
     Dosage: TABS
  6. COUMADIN [Suspect]
     Active Substance: WARFARIN SODIUM
     Route: 048
     Dates: start: 20130517, end: 20140517
  7. PLAVIX [Interacting]
     Active Substance: CLOPIDOGREL BISULFATE
     Route: 048
     Dates: start: 20130517, end: 20140517
  8. BISOPROLOL HEMIFUMARATE [Concomitant]
     Active Substance: BISOPROLOL
  9. LASIX [Concomitant]
     Active Substance: FUROSEMIDE
     Dosage: TABS

REACTIONS (4)
  - Anaemia [Not Recovered/Not Resolved]
  - International normalised ratio increased [Not Recovered/Not Resolved]
  - Drug interaction [Not Recovered/Not Resolved]
  - Epistaxis [Not Recovered/Not Resolved]
